FAERS Safety Report 5519144-6 (Version None)
Quarter: 2007Q4

REPORT INFORMATION
  Report Type: 
  Country: None (occurrence: None)
  Receive Date: 20071114
  Receipt Date: 20071114
  Transmission Date: 20080405
  Serious: Yes (Other)
  Sender: FDA-Public Use
  Company Number: None

PATIENT
  Age: 42 Year
  Sex: Female
  Weight: 77.1115 kg

DRUGS (2)
  1. LUPRON DEPOT [Suspect]
     Indication: OVARIAN CYST
     Dosage: 3.75 MG 1 INJ/MONTH SQ
     Route: 058
     Dates: start: 20030116, end: 20030317
  2. LUPRON DEPOT [Suspect]
     Indication: PAIN
     Dosage: 3.75 MG 1 INJ/MONTH SQ
     Route: 058
     Dates: start: 20030116, end: 20030317

REACTIONS (8)
  - ARTHRALGIA [None]
  - ARTHRITIS [None]
  - BLOOD URINE PRESENT [None]
  - BONE PAIN [None]
  - NEUROPATHY [None]
  - OSTEOPOROSIS [None]
  - SCLERODERMA [None]
  - SPONDYLITIS [None]
